FAERS Safety Report 5581615-4 (Version None)
Quarter: 2008Q1

REPORT INFORMATION
  Report Type: 
  Country: None (occurrence: None)
  Receive Date: 20080103
  Receipt Date: 20080103
  Transmission Date: 20080703
  Serious: Yes (Other)
  Sender: FDA-Public Use
  Company Number: None

PATIENT
  Age: 55 Year
  Sex: Female
  Weight: 63.5036 kg

DRUGS (2)
  1. SERTRALINE HCL [Suspect]
     Indication: ANXIETY
     Dosage: 50MG  2X A DAY  PO
     Route: 048
     Dates: start: 20070101, end: 20070114
  2. SERTRALINE HCL [Suspect]
     Indication: DEPRESSION
     Dosage: 50MG  2X A DAY  PO
     Route: 048
     Dates: start: 20070101, end: 20070114

REACTIONS (4)
  - DEPRESSION [None]
  - DYSPEPSIA [None]
  - HEADACHE [None]
  - PHARMACEUTICAL PRODUCT COMPLAINT [None]
